FAERS Safety Report 8809319 (Version 3)
Quarter: 2012Q4

REPORT INFORMATION
  Report Type: Report from Study
  Country: JP (occurrence: JP)
  Receive Date: 20120926
  Receipt Date: 20121109
  Transmission Date: 20130627
  Serious: Yes (Life-Threatening)
  Sender: FDA-Public Use
  Company Number: JP-PFIZER INC-2012234168

PATIENT
  Age: 64 Year
  Sex: Female
  Weight: 63.5 kg

DRUGS (7)
  1. NORVASC [Suspect]
     Indication: HYPERTENSION
     Dosage: 10 mg, 1x/day
     Route: 048
     Dates: start: 20111214
  2. FLUITRAN [Concomitant]
     Indication: HYPERTENSION
     Dosage: 2 mg, UNK
     Route: 048
  3. DIAZEPAM [Concomitant]
     Indication: ANXIETY NEUROSIS
     Dosage: UNK
     Route: 048
  4. KENTAN [Concomitant]
     Indication: GASTRIC ULCER
     Dosage: UNK
     Route: 048
  5. KOBALNON [Concomitant]
     Indication: GASTRIC ULCER
     Dosage: UNK
     Route: 048
  6. LOCHOL [Concomitant]
     Indication: HYPERLIPIDAEMIA
     Dosage: UNK
     Route: 048
  7. EPADEL [Concomitant]
     Indication: HYPERLIPIDAEMIA
     Dosage: UNK
     Route: 048

REACTIONS (1)
  - Oral neoplasm [Not Recovered/Not Resolved]
